FAERS Safety Report 5764658-7 (Version None)
Quarter: 2008Q2

REPORT INFORMATION
  Report Type: 
  Country: None (occurrence: None)
  Receive Date: 20080611
  Receipt Date: 20080604
  Transmission Date: 20081010
  Serious: Yes (Hospitalization)
  Sender: FDA-Public Use
  Company Number: PHEH2008US04792

PATIENT
  Sex: Female
  Weight: 63.039 kg

DRUGS (6)
  1. TEKTURNA [Suspect]
     Indication: HYPERTENSION
     Dosage: 300 MG, QD
     Route: 048
     Dates: start: 20080424, end: 20080505
  2. TEKTURNA [Suspect]
     Dosage: 300 MG, QD
     Route: 048
     Dates: start: 20080425, end: 20080504
  3. DIOVAN [Suspect]
     Indication: HYPERTENSION
     Dosage: 320 MG, UNK
  4. TENORETIC 100 [Concomitant]
     Dosage: 100/25
     Route: 048
     Dates: start: 19970101
  5. NORVASC [Concomitant]
     Dosage: 10 MG, QD
     Route: 048
     Dates: start: 19970101
  6. MICRO-K [Concomitant]
     Dosage: 20 MEQ, QD
     Route: 048
     Dates: start: 19990101

REACTIONS (3)
  - BLOOD CREATININE INCREASED [None]
  - BLOOD POTASSIUM DECREASED [None]
  - BLOOD PRESSURE INADEQUATELY CONTROLLED [None]
